FAERS Safety Report 20714097 (Version 1)
Quarter: 2022Q2

REPORT INFORMATION
  Report Type: Spontaneous
  Country: US (occurrence: None)
  Receive Date: 20220414
  Receipt Date: 20220414
  Transmission Date: 20220721
  Serious: No
  Sender: FDA-Public Use
  Company Number: None

PATIENT
  Sex: Female

DRUGS (2)
  1. SUTAB [Suspect]
     Active Substance: MAGNESIUM SULFATE\POTASSIUM CHLORIDE\SODIUM SULFATE
     Indication: Colonoscopy
     Route: 048
     Dates: start: 20220227, end: 20220227
  2. SUTAB [Concomitant]
     Active Substance: MAGNESIUM SULFATE\POTASSIUM CHLORIDE\SODIUM SULFATE
     Dates: start: 20220227, end: 20220227

REACTIONS (3)
  - Fatigue [None]
  - Foreign body in gastrointestinal tract [None]
  - Accidental exposure to product packaging [None]

NARRATIVE: CASE EVENT DATE: 20220228
